FAERS Safety Report 25221405 (Version 1)
Quarter: 2025Q2

REPORT INFORMATION
  Report Type: Spontaneous
  Country: US (occurrence: None)
  Receive Date: 20250421
  Receipt Date: 20250421
  Transmission Date: 20250716
  Serious: Yes (Disabling, Other)
  Sender: FDA-CTU
  Company Number: None

PATIENT
  Age: 76 Year
  Sex: Female
  Weight: 74.25 kg

DRUGS (18)
  1. QVAR REDIHALER [Suspect]
     Active Substance: BECLOMETHASONE DIPROPIONATE
     Indication: Asthma
     Dosage: 4 INHALLATION(S) TWICE A DAY RESPIRATORY (INHALTION)
     Route: 055
     Dates: start: 20250325, end: 20250411
  2. LOSARTAN [Concomitant]
     Active Substance: LOSARTAN
  3. MONTELUKAST [Concomitant]
     Active Substance: MONTELUKAST
  4. PRAVASTATIN [Concomitant]
     Active Substance: PRAVASTATIN
  5. ALENDRONATE [Concomitant]
     Active Substance: ALENDRONATE SODIUM
  6. AZITHROMYCIN [Concomitant]
     Active Substance: AZITHROMYCIN
  7. DOXYCYCLINE [Concomitant]
     Active Substance: DOXYCYCLINE
  8. DUPIXENT [Concomitant]
     Active Substance: DUPILUMAB
  9. Nebulizer with Albuterol + Ipratoprium [Concomitant]
  10. ALBUTEROL [Concomitant]
     Active Substance: ALBUTEROL
  11. FLUTICASONE PROPIONATE\SALMETEROL XINAFOATE [Concomitant]
     Active Substance: FLUTICASONE PROPIONATE\SALMETEROL XINAFOATE
  12. Amuity Inhaler [Concomitant]
  13. DEXAMETHASONE [Concomitant]
     Active Substance: DEXAMETHASONE
  14. VITAMINS [Concomitant]
     Active Substance: VITAMINS
  15. CALCIUM [Concomitant]
     Active Substance: CALCIUM
  16. VITAMIN D [Concomitant]
     Active Substance: VITAMIN D NOS
  17. CHLORPHENIRAMINE [Concomitant]
     Active Substance: CHLORPHENIRAMINE
  18. LACTOBACILLUS ACIDOPHILUS [Concomitant]
     Active Substance: LACTOBACILLUS ACIDOPHILUS

REACTIONS (11)
  - Respiratory tract irritation [None]
  - Cough [None]
  - Lung opacity [None]
  - Pulmonary congestion [None]
  - Dyspnoea [None]
  - Therapy interrupted [None]
  - Self-medication [None]
  - Productive cough [None]
  - Wheezing [None]
  - Bronchitis bacterial [None]
  - Quality of life decreased [None]

NARRATIVE: CASE EVENT DATE: 20250328
